FAERS Safety Report 11515008 (Version 1)
Quarter: 2015Q3

REPORT INFORMATION
  Report Type: Spontaneous
  Country: MY (occurrence: MY)
  Receive Date: 20150916
  Receipt Date: 20150916
  Transmission Date: 20151125
  Serious: Yes (Hospitalization)
  Sender: FDA-Public Use
  Company Number: MY-BAYER-2015-418571

PATIENT
  Age: 34 Year
  Sex: Male

DRUGS (1)
  1. CIPROBAY [Suspect]
     Active Substance: CIPROFLOXACIN
     Indication: SINUSITIS
     Dosage: UNK
     Route: 042
     Dates: start: 20150831, end: 20150901

REACTIONS (2)
  - Infusion site erythema [None]
  - Infusion site pain [None]

NARRATIVE: CASE EVENT DATE: 20150831
